FAERS Safety Report 11118953 (Version 2)
Quarter: 2015Q2

REPORT INFORMATION
  Report Type: Spontaneous
  Country: US (occurrence: US)
  Receive Date: 20150518
  Receipt Date: 20150518
  Transmission Date: 20150821
  Serious: Yes (Other)
  Sender: FDA-Public Use
  Company Number: US-LPDUSPRD-20150265

PATIENT
  Age: 30 Year
  Sex: Female
  Weight: 58.06 kg

DRUGS (2)
  1. VENOFER [Suspect]
     Active Substance: IRON SUCROSE
     Dosage: 400MG/250ML NS OVER 2.5 HOURS
     Route: 042
     Dates: start: 20150311, end: 20150311
  2. HYDROCORTISONE. [Concomitant]
     Active Substance: HYDROCORTISONE
     Dosage: DOSE NOT PROVIDED
     Route: 065
     Dates: start: 20150311, end: 20150311

REACTIONS (12)
  - Vomiting [Unknown]
  - Heart rate increased [Unknown]
  - Peripheral swelling [Unknown]
  - Type I hypersensitivity [Unknown]
  - Off label use [Unknown]
  - Somnolence [Unknown]
  - Infusion site pain [Unknown]
  - Nausea [Unknown]
  - Pain in extremity [Unknown]
  - Blood pressure decreased [Unknown]
  - Burning sensation [Unknown]
  - Urticaria [Unknown]

NARRATIVE: CASE EVENT DATE: 20150311
